FAERS Safety Report 11399799 (Version 1)
Quarter: 2015Q3

REPORT INFORMATION
  Report Type: Spontaneous
  Country: US (occurrence: None)
  Receive Date: 20150805
  Receipt Date: 20150805
  Transmission Date: 20151125
  Serious: Yes (Hospitalization)
  Sender: FDA-Public Use
  Company Number: GTI003091

PATIENT
  Age: 20 Year
  Sex: Female

DRUGS (17)
  1. STERILE WATER [Concomitant]
     Active Substance: WATER
  2. EXCEDRIN EXTRA STRENGTH [Concomitant]
     Active Substance: ACETAMINOPHEN\ASPIRIN\CAFFEINE
  3. LIDOCAINE/PRILOCAINE 2.5/2.5% FONGERA [Concomitant]
     Active Substance: LIDOCAINE\PRILOCAINE
  4. EPIPEN [Concomitant]
     Active Substance: EPINEPHRINE
  5. REGLAN/00041901/ [Concomitant]
  6. GAMUNEX-C [Suspect]
     Active Substance: HUMAN IMMUNOGLOBULIN G
     Indication: IMPAIRED GASTRIC EMPTYING
     Route: 042
     Dates: start: 20130404
  7. ACETAMINOPHEN. [Concomitant]
     Active Substance: ACETAMINOPHEN
  8. FIORICET [Concomitant]
     Active Substance: ACETAMINOPHEN\BUTALBITAL\CAFFEINE
  9. ONDANSETRON [Concomitant]
     Active Substance: ONDANSETRON
  10. ELINEST [Concomitant]
     Active Substance: ETHINYL ESTRADIOL\NORGESTREL
  11. NORMAL SALINE [Concomitant]
     Active Substance: SODIUM CHLORIDE
  12. NACL [Concomitant]
     Active Substance: SODIUM CHLORIDE
  13. SOLU-MEDROL [Concomitant]
     Active Substance: METHYLPREDNISOLONE SODIUM SUCCINATE
  14. METHYLPREDNISOLONE. [Concomitant]
     Active Substance: METHYLPREDNISOLONE
  15. DIPHENHYDRAMINE. [Concomitant]
     Active Substance: DIPHENHYDRAMINE
  16. HEPARIN [Concomitant]
     Active Substance: HEPARIN SODIUM
  17. SULFA/00076401/ [Concomitant]

REACTIONS (2)
  - Loss of consciousness [None]
  - Pain in extremity [None]

NARRATIVE: CASE EVENT DATE: 20150226
